FAERS Safety Report 21951844 (Version 2)
Quarter: 2023Q2

REPORT INFORMATION
  Report Type: Other
  Country: US (occurrence: None)
  Receive Date: 20230203
  Receipt Date: 20230407
  Transmission Date: 20230721
  Serious: No
  Sender: FDA-Public Use
  Company Number: US-ROCHE-3003339

PATIENT
  Age: 36 Year
  Sex: Female

DRUGS (2)
  1. RITUXAN [Suspect]
     Active Substance: RITUXIMAB
     Indication: Relapsing-remitting multiple sclerosis
     Dosage: HER LAST INFUSION WAS RITUXIMAB 1 G AS OF 02/MAR/2021
     Route: 065
  2. OCREVUS [Suspect]
     Active Substance: OCRELIZUMAB
     Indication: Relapsing multiple sclerosis
     Route: 065
     Dates: start: 2017

REACTIONS (3)
  - Maternal exposure before pregnancy [Unknown]
  - Off label use [Unknown]
  - COVID-19 [Recovered/Resolved]
